FAERS Safety Report 9509438 (Version 1)
Quarter: 2013Q3

REPORT INFORMATION
  Report Type: Spontaneous
  Country: US (occurrence: US)
  Receive Date: 20130909
  Receipt Date: 20130909
  Transmission Date: 20140515
  Serious: Yes (Hospitalization)
  Sender: FDA-Public Use
  Company Number: US-BRISTOL-MYERS SQUIBB COMPANY-17282609

PATIENT
  Sex: Female
  Weight: 72.56 kg

DRUGS (9)
  1. ABILIFY [Suspect]
     Indication: BIPOLAR DISORDER
  2. MORPHINE SULFATE [Suspect]
     Indication: PAIN
  3. CELEXA [Concomitant]
  4. ATIVAN [Concomitant]
  5. VICODIN [Concomitant]
  6. HYDROCODONE [Concomitant]
     Indication: PAIN
     Dosage: 1 DF:5325 UNITS NOS
  7. ATENOLOL [Concomitant]
     Indication: BLOOD PRESSURE
  8. IBUPROFEN [Concomitant]
  9. FLEXERIL [Concomitant]
     Indication: MUSCLE RELAXANT THERAPY

REACTIONS (4)
  - Chest pain [Unknown]
  - Hypotension [Unknown]
  - Abdominal discomfort [Unknown]
  - Insomnia [Unknown]
